FAERS Safety Report 23736058 (Version 1)
Quarter: 2024Q2

REPORT INFORMATION
  Report Type: Spontaneous
  Country: US (occurrence: None)
  Receive Date: 20240411
  Receipt Date: 20240411
  Transmission Date: 20240716
  Serious: No
  Sender: FDA-Public Use
  Company Number: None

PATIENT
  Age: 49 Year
  Sex: Male
  Weight: 138.6 kg

DRUGS (4)
  1. WEGOVY [Suspect]
     Active Substance: SEMAGLUTIDE
     Indication: Blood glucose increased
     Dates: start: 20230208, end: 20230224
  2. WEGOVY [Suspect]
     Active Substance: SEMAGLUTIDE
     Indication: Weight decreased
  3. MOUNJARO [Concomitant]
     Active Substance: TIRZEPATIDE
  4. almodopine losartan albuterol [Concomitant]

REACTIONS (5)
  - Swelling face [None]
  - Dyspnoea [None]
  - Nausea [None]
  - Blindness [None]
  - Headache [None]

NARRATIVE: CASE EVENT DATE: 20230208
